FAERS Safety Report 5498558-7 (Version None)
Quarter: 2007Q4

REPORT INFORMATION
  Report Type: 
  Country: None (occurrence: None)
  Receive Date: 20071024
  Receipt Date: 20071024
  Transmission Date: 20080405
  Serious: No
  Sender: FDA-Public Use
  Company Number: None

PATIENT
  Sex: Female
  Weight: 69 kg

DRUGS (2)
  1. CYCLOPHOSPHAMIDE [Suspect]
     Dosage: 1080 MG
  2. DOXORUBICIN HYDROCHLORIDE [Suspect]
     Dosage: 108 MG

REACTIONS (1)
  - NEUTROPENIA [None]
